FAERS Safety Report 20622885 (Version 2)
Quarter: 2022Q2

REPORT INFORMATION
  Report Type: Spontaneous
  Country: IN (occurrence: IN)
  Receive Date: 20220322
  Receipt Date: 20220419
  Transmission Date: 20220721
  Serious: No
  Sender: FDA-Public Use
  Company Number: IN-LUPIN PHARMACEUTICALS INC.-2022-03869

PATIENT
  Age: 32 Year
  Sex: Female

DRUGS (2)
  1. PHENYTOIN SODIUM [Suspect]
     Active Substance: PHENYTOIN SODIUM
     Indication: Seizure
     Dosage: UNK
     Route: 042
  2. DIAZEPAM [Suspect]
     Active Substance: DIAZEPAM
     Indication: Seizure
     Dosage: UNK
     Route: 042

REACTIONS (1)
  - Exposure during pregnancy [Unknown]
